FAERS Safety Report 21833405 (Version 1)
Quarter: 2023Q1

REPORT INFORMATION
  Report Type: Spontaneous
  Country: US (occurrence: US)
  Receive Date: 20230107
  Receipt Date: 20230107
  Transmission Date: 20230418
  Serious: No
  Sender: FDA-Public Use
  Company Number: US-drreddys-SPO/USA/22/0159123

PATIENT
  Age: 7 Decade
  Sex: Female

DRUGS (1)
  1. DOCETAXEL [Suspect]
     Active Substance: DOCETAXEL
     Indication: Lung carcinoma cell type unspecified recurrent
     Dosage: EVERY 3 WEEKS
     Route: 042

REACTIONS (1)
  - Fatigue [Unknown]
